FAERS Safety Report 4784170-1 (Version None)
Quarter: 2005Q3

REPORT INFORMATION
  Report Type: 
  Country: None (occurrence: None)
  Receive Date: 20050930
  Receipt Date: 20050823
  Transmission Date: 20060218
  Serious: No
  Sender: FDA-Public Use
  Company Number: US-GLAXOSMITHKLINE-A0571470A

PATIENT
  Age: 58 Year
  Sex: Female

DRUGS (13)
  1. FLOVENT [Suspect]
     Indication: ASTHMA
     Dosage: 2PUFF FOUR TIMES PER DAY
     Route: 055
     Dates: start: 20050501
  2. SEREVENT [Suspect]
     Indication: DRUG USE FOR UNKNOWN INDICATION
     Dosage: 1PUFF TWICE PER DAY
     Route: 055
  3. COMBIVENT [Concomitant]
  4. MULTI-VITAMIN [Concomitant]
  5. VITAMIN B COMPLEX CAP [Concomitant]
  6. BUSPIRONE HCL [Concomitant]
  7. VALIUM [Concomitant]
  8. ZYRTEC [Concomitant]
  9. ACIPHEX [Concomitant]
  10. STOOL SOFTENER [Concomitant]
  11. COUMADIN [Concomitant]
  12. SINGULAIR [Concomitant]
  13. NYSTATIN [Concomitant]

REACTIONS (7)
  - DIZZINESS [None]
  - DRUG INEFFECTIVE [None]
  - DYSPNOEA EXACERBATED [None]
  - OVERDOSE [None]
  - PHARYNGEAL OEDEMA [None]
  - SWOLLEN TONGUE [None]
  - THROAT TIGHTNESS [None]
